FAERS Safety Report 10222579 (Version 2)
Quarter: 2014Q2

REPORT INFORMATION
  Report Type: Spontaneous
  Country: JP (occurrence: JP)
  Receive Date: 20140606
  Receipt Date: 20140606
  Transmission Date: 20141212
  Serious: Yes (Hospitalization)
  Sender: FDA-Public Use
  Company Number: JP-B.I. PHARMACEUTICALS,INC./RIDGEFIELD-2014-BI-24297NB

PATIENT
  Age: 70 Year
  Sex: Male

DRUGS (1)
  1. MIRAPEX LA [Suspect]
     Indication: PRODUCT USED FOR UNKNOWN INDICATION
     Dosage: 3.75 MG
     Route: 048

REACTIONS (2)
  - Foot fracture [Unknown]
  - Inappropriate schedule of drug administration [Unknown]
